FAERS Safety Report 19284741 (Version 2)
Quarter: 2021Q2

REPORT INFORMATION
  Report Type: Other
  Country: JP (occurrence: JP)
  Receive Date: 20210521
  Receipt Date: 20210526
  Transmission Date: 20210717
  Serious: Yes (Hospitalization, Other)
  Sender: FDA-Public Use
  Company Number: JP-ROCHE-2831910

PATIENT
  Age: 65 Year
  Sex: Female

DRUGS (7)
  1. OXALIPLATIN. [Concomitant]
     Active Substance: OXALIPLATIN
     Indication: COLON CANCER
     Dosage: UNK
     Route: 040
  2. FLUDARABINE PHOSPHATE. [Concomitant]
     Active Substance: FLUDARABINE PHOSPHATE
     Indication: PREOPERATIVE CARE
     Dosage: 30 MILLIGRAM/SQ. METER, QD
     Route: 065
     Dates: start: 201801, end: 2018
  3. XELODA [Suspect]
     Active Substance: CAPECITABINE
     Indication: COLON CANCER
     Route: 048
  4. BUSULFAN. [Concomitant]
     Active Substance: BUSULFAN
     Indication: PREOPERATIVE CARE
     Dosage: 3.2 MILLIGRAM/SQ. METER, QD
     Route: 065
     Dates: start: 201801, end: 2018
  5. CELLCEPT [Suspect]
     Active Substance: MYCOPHENOLATE MOFETIL\MYCOPHENOLATE MOFETIL HYDROCHLORIDE
     Indication: PROPHYLAXIS AGAINST GRAFT VERSUS HOST DISEASE
     Route: 048
     Dates: start: 2018
  6. MELPHALAN. [Concomitant]
     Active Substance: MELPHALAN
     Indication: PREOPERATIVE CARE
     Dosage: 80 MILLIGRAM/SQ. METER, QD
     Route: 065
     Dates: start: 201801, end: 2018
  7. TACROLIMUS MONOHYDRATE [Concomitant]
     Active Substance: TACROLIMUS
     Indication: PROPHYLAXIS AGAINST GRAFT VERSUS HOST DISEASE
     Dosage: UNK
     Route: 065
     Dates: start: 2018

REACTIONS (3)
  - Post transplant lymphoproliferative disorder [Unknown]
  - Off label use [Unknown]
  - Myelodysplastic syndrome [Unknown]

NARRATIVE: CASE EVENT DATE: 2018
